FAERS Safety Report 6669653-1 (Version None)
Quarter: 2010Q2

REPORT INFORMATION
  Report Type: 
  Country: None (occurrence: None)
  Receive Date: 20100406
  Receipt Date: 20100323
  Transmission Date: 20101027
  Serious: Yes (Death, Hospitalization, Other)
  Sender: FDA-Public Use
  Company Number: GB-MYLANLABS-2010S1004848

PATIENT
  Age: 70 Year
  Sex: Male

DRUGS (1)
  1. AMITRIPTYLINE HCL [Suspect]
     Route: 065

REACTIONS (5)
  - ACUTE RESPIRATORY DISTRESS SYNDROME [None]
  - CONVULSION [None]
  - DEPRESSED LEVEL OF CONSCIOUSNESS [None]
  - HYPOTENSION [None]
  - OVERDOSE [None]
